FAERS Safety Report 21507451 (Version 2)
Quarter: 2022Q4

REPORT INFORMATION
  Report Type: Report from Study
  Country: BR (occurrence: BR)
  Receive Date: 20221026
  Receipt Date: 20221108
  Transmission Date: 20230113
  Serious: Yes (Other)
  Sender: FDA-Public Use
  Company Number: BR-NOVARTISPH-NVSC2022BR143784

PATIENT
  Age: 49 Year
  Sex: Female
  Weight: 67 kg

DRUGS (11)
  1. XOLAIR [Suspect]
     Active Substance: OMALIZUMAB
     Indication: Asthma
     Dosage: 150 MG, EVERY 4 WEEKS
     Route: 058
     Dates: start: 20220613, end: 20220613
  2. XOLAIR [Suspect]
     Active Substance: OMALIZUMAB
     Indication: Nasal polyps
     Dosage: UNK, QMO
     Route: 058
     Dates: start: 20220613
  3. XOLAIR [Suspect]
     Active Substance: OMALIZUMAB
     Dosage: UNK
     Route: 065
     Dates: start: 20221013
  4. OLOPATADINE HYDROCHLORIDE [Suspect]
     Active Substance: OLOPATADINE HYDROCHLORIDE
     Indication: Hypersensitivity
     Dosage: UNK, QD (MORE THAN 4 MONTHS)
     Route: 065
  5. OLOPATADINE HYDROCHLORIDE [Suspect]
     Active Substance: OLOPATADINE HYDROCHLORIDE
     Dosage: 1 DRP, 1.1 MG/ML (IN THE EYE) IN JUN
     Route: 047
  6. PANTOPRAZOLE [Suspect]
     Active Substance: PANTOPRAZOLE
     Indication: Product used for unknown indication
     Dosage: UNK
     Route: 065
  7. ALENIA [Concomitant]
     Indication: Product used for unknown indication
     Dosage: UNK (USED FOR 13 YEARS)
     Route: 065
  8. BUDESONIDE [Concomitant]
     Active Substance: BUDESONIDE
     Indication: Product used for unknown indication
     Dosage: UNK, BID (2 PUFFS IN THE MORNING AND 2 IN NIGHT)
     Route: 065
  9. MONTELUKAST SODIUM [Concomitant]
     Active Substance: MONTELUKAST SODIUM
     Indication: Product used for unknown indication
     Dosage: 10 MG, QD (AT NIGHT)
     Route: 065
  10. CAPTOPRIL [Concomitant]
     Active Substance: CAPTOPRIL
     Indication: Product used for unknown indication
     Dosage: UNK, TID
     Route: 065
     Dates: start: 202205
  11. ALBUTEROL [Concomitant]
     Active Substance: ALBUTEROL
     Indication: Product used for unknown indication
     Dosage: UNK (WHEN HAS CRISIS)
     Route: 065

REACTIONS (34)
  - Eye allergy [Unknown]
  - Eye inflammation [Unknown]
  - Lacrimation increased [Not Recovered/Not Resolved]
  - Ear infection [Unknown]
  - Swelling [Recovered/Resolved with Sequelae]
  - Abdominal pain [Recovered/Resolved with Sequelae]
  - Abdominal distension [Recovered/Resolved with Sequelae]
  - Eye swelling [Not Recovered/Not Resolved]
  - Eye pruritus [Not Recovered/Not Resolved]
  - Dysphonia [Not Recovered/Not Resolved]
  - Pharyngitis [Not Recovered/Not Resolved]
  - Injection site pain [Unknown]
  - Pruritus [Recovered/Resolved with Sequelae]
  - Reflux gastritis [Unknown]
  - Somnolence [Recovered/Resolved with Sequelae]
  - Nausea [Recovered/Resolved]
  - Influenza [Not Recovered/Not Resolved]
  - Pain [Recovered/Resolved with Sequelae]
  - Pain in extremity [Unknown]
  - Blood cholesterol increased [Unknown]
  - Blood triglycerides increased [Unknown]
  - Gastrointestinal tract irritation [Unknown]
  - Sneezing [Unknown]
  - Ear inflammation [Unknown]
  - Lip swelling [Unknown]
  - Nasal congestion [Unknown]
  - Swelling face [Unknown]
  - Sensation of foreign body [Unknown]
  - Nasal inflammation [Unknown]
  - Asthma [Unknown]
  - Weight increased [Unknown]
  - Nausea [Recovered/Resolved with Sequelae]
  - Hypersensitivity [Unknown]
  - Cough [Unknown]

NARRATIVE: CASE EVENT DATE: 20220619
